FAERS Safety Report 13289994 (Version 2)
Quarter: 2017Q1

REPORT INFORMATION
  Report Type: Report from Study
  Country: US (occurrence: US)
  Receive Date: 20170302
  Receipt Date: 20170315
  Transmission Date: 20170428
  Serious: Yes (Hospitalization)
  Sender: FDA-Public Use
  Company Number: US-PFIZER INC-2017075337

PATIENT
  Age: 61 Year
  Sex: Male
  Weight: 101 kg

DRUGS (6)
  1. LEUPROLIDE /00726901/ [Concomitant]
  2. METHYLCELLULOSE [Concomitant]
     Active Substance: METHYLCELLULOSES
  3. PALBOCICLIB [Suspect]
     Active Substance: PALBOCICLIB
     Indication: PROSTATE CANCER METASTATIC
     Dosage: 125 MG, DAILY
     Route: 048
     Dates: start: 20160921, end: 20170127
  4. KEPPRA [Concomitant]
     Active Substance: LEVETIRACETAM
     Dosage: UNK
  5. BICALUTAMIDE. [Concomitant]
     Active Substance: BICALUTAMIDE
  6. ZINC. [Concomitant]
     Active Substance: ZINC

REACTIONS (1)
  - Subdural haematoma [Recovered/Resolved]

NARRATIVE: CASE EVENT DATE: 20170126
